FAERS Safety Report 15675582 (Version 1)
Quarter: 2018Q4

REPORT INFORMATION
  Report Type: Spontaneous
  Country: JP (occurrence: JP)
  Receive Date: 20181130
  Receipt Date: 20181130
  Transmission Date: 20190205
  Serious: Yes (Hospitalization, Other)
  Sender: FDA-Public Use
  Company Number: JP-GLAXOSMITHKLINE-JP2018JPN214209

PATIENT
  Age: 45 Year
  Sex: Female

DRUGS (4)
  1. ZOVIRAX [Suspect]
     Active Substance: ACYCLOVIR
     Dosage: UNK
     Route: 041
  2. ZOVIRAX [Suspect]
     Active Substance: ACYCLOVIR
     Dosage: 125 MG, 1D
     Route: 041
  3. ZOVIRAX [Suspect]
     Active Substance: ACYCLOVIR
     Indication: HERPES ZOSTER
     Dosage: 500 MG, 1D
     Route: 041
  4. AMENAMEVIR [Concomitant]
     Dosage: 400 MG, 1D

REACTIONS (10)
  - Multiple organ dysfunction syndrome [Recovering/Resolving]
  - Renal failure [Recovering/Resolving]
  - Varicella [Recovering/Resolving]
  - Respiratory disorder [Recovering/Resolving]
  - Bone marrow failure [Recovering/Resolving]
  - Adverse reaction [Recovering/Resolving]
  - Fluid retention [Recovering/Resolving]
  - Altered state of consciousness [Recovering/Resolving]
  - Herpes zoster meningoencephalitis [Recovering/Resolving]
  - Cutaneous symptom [Recovering/Resolving]
